FAERS Safety Report 5270444-7 (Version None)
Quarter: 2007Q1

REPORT INFORMATION
  Report Type: 
  Country: None (occurrence: None)
  Receive Date: 20070320
  Receipt Date: 20070308
  Transmission Date: 20070707
  Serious: Yes (Hospitalization)
  Sender: FDA-Public Use
  Company Number: FR-PFIZER INC-2007019375

PATIENT
  Sex: Male

DRUGS (3)
  1. SU-011,248 [Suspect]
     Indication: RENAL CELL CARCINOMA STAGE UNSPECIFIED
     Route: 048
     Dates: start: 20051031, end: 20060305
  2. SU-011,248 [Suspect]
     Route: 048
     Dates: start: 20060321, end: 20060807
  3. SU-011,248 [Suspect]
     Route: 048

REACTIONS (2)
  - ASTHENIA [None]
  - INTESTINAL OBSTRUCTION [None]
